FAERS Safety Report 8769111 (Version 1)
Quarter: 2012Q4

REPORT INFORMATION
  Report Type: 
  Country: US (occurrence: US)
  Receive Date: 20120904
  Receipt Date: 20120904
  Transmission Date: 20130627
  Serious: No
  Sender: FDA-Public Use
  Company Number: US-AMGEN-USASP2012051732

PATIENT
  Age: 39 Year
  Sex: Female

DRUGS (1)
  1. ENBREL [Suspect]
     Indication: CONNECTIVE TISSUE DISORDER
     Dosage: 25 mg, qwk
     Dates: start: 20120717

REACTIONS (1)
  - Injection site haemorrhage [Recovered/Resolved]
